FAERS Safety Report 14011905 (Version 3)
Quarter: 2017Q4

REPORT INFORMATION
  Report Type: Report from Study
  Country: US (occurrence: US)
  Receive Date: 20170926
  Receipt Date: 20171018
  Transmission Date: 20180321
  Serious: Yes (Death, Hospitalization)
  Sender: FDA-Public Use
  Company Number: US-ACADIA PHARMACEUTICALS INC.-ACA-2017-005527

PATIENT
  Age: 77 Year
  Sex: Male

DRUGS (3)
  1. NUPLAZID [Suspect]
     Active Substance: PIMAVANSERIN TARTRATE
     Indication: DELUSION
  2. NUPLAZID [Suspect]
     Active Substance: PIMAVANSERIN TARTRATE
     Indication: PARKINSONISM
     Dosage: 34 MG, QD
     Route: 048
     Dates: start: 20170425, end: 20171003
  3. NUPLAZID [Suspect]
     Active Substance: PIMAVANSERIN TARTRATE
     Indication: HALLUCINATION

REACTIONS (4)
  - Treatment noncompliance [Unknown]
  - Death [Fatal]
  - Nonspecific reaction [Unknown]
  - Bedridden [Unknown]

NARRATIVE: CASE EVENT DATE: 20171003
